FAERS Safety Report 8765207 (Version 1)
Quarter: 2012Q4

REPORT INFORMATION
  Report Type: 
  Country: US (occurrence: US)
  Receive Date: 20120901
  Receipt Date: 20120901
  Transmission Date: 20130627
  Serious: No
  Sender: FDA-Public Use
  Company Number: US-PFIZER INC-2012213107

PATIENT
  Age: 63 Year

DRUGS (15)
  1. TIROSINT [Concomitant]
     Dosage: 150 ug, daily
     Route: 048
  2. COLACE [Concomitant]
     Dosage: 100 mg, at bedtime everyday as needed
     Route: 048
  3. LYRICA [Suspect]
     Dosage: 50 mg, 2x/day
     Route: 048
  4. LYRICA [Suspect]
     Dosage: 75 mg, 1 at night
     Route: 048
  5. EFFEXOR XR [Suspect]
     Dosage: UNK
  6. ZOLOFT [Suspect]
     Dosage: UNK
  7. CELEXA [Concomitant]
     Dosage: 10 mg, every day
     Route: 048
  8. ALBUTEROL SULFATE [Concomitant]
     Dosage: 90 ug, inhale 2 puff by inhalation route every 4-6 hours as needed
  9. SINGULAIR [Concomitant]
     Dosage: 10 mg, take 1 tablet every day in the evening prn
     Route: 048
  10. FLONASE [Concomitant]
     Dosage: 50 ug, spray by intranasal route every day in each nostril prn
  11. LIDOCAINE [Concomitant]
     Dosage: 700 mg, (5%) apply 1 patch every day (May wear uo to 12 hours)
     Route: 062
  12. DESYREL [Concomitant]
     Dosage: 50 mg, one and half qhs
     Route: 048
  13. METOPROLOL SUCCINATE [Concomitant]
     Dosage: 100 mg, 2x/day
     Route: 048
  14. XANAX [Concomitant]
     Indication: ANXIETY
     Dosage: 0.25 mg, twice daily as needed
  15. XANAX [Concomitant]
     Indication: SLEEP DISORDER

REACTIONS (4)
  - Hypersensitivity [Unknown]
  - Asthma [Unknown]
  - Back pain [Unknown]
  - Depression [Unknown]
